FAERS Safety Report 5637292-7 (Version None)
Quarter: 2008Q1

REPORT INFORMATION
  Report Type: 
  Country: None (occurrence: None)
  Receive Date: 20080225
  Receipt Date: 20080217
  Transmission Date: 20080703
  Serious: Yes (Life-Threatening)
  Sender: FDA-Public Use
  Company Number: NO-AVENTIS-200810753GDDC

PATIENT
  Age: 66 Year
  Sex: Male

DRUGS (3)
  1. TAXOTERE [Suspect]
     Indication: NEOPLASM MALIGNANT
     Route: 042
     Dates: start: 20080107, end: 20080107
  2. CISPLATIN [Concomitant]
     Indication: NEOPLASM MALIGNANT
     Route: 042
     Dates: start: 20080107, end: 20080107
  3. FLUOROURACIL [Concomitant]
     Indication: NEOPLASM MALIGNANT
     Route: 042
     Dates: start: 20080107, end: 20080110

REACTIONS (1)
  - AORTIC THROMBOSIS [None]
